FAERS Safety Report 8797570 (Version 1)
Quarter: 2012Q4

REPORT INFORMATION
  Report Type: 
  Country: HU (occurrence: HU)
  Receive Date: 20120920
  Receipt Date: 20120920
  Transmission Date: 20130627
  Serious: Yes (Other)
  Sender: FDA-Public Use
  Company Number: PHHY2012HU079419

PATIENT
  Age: 53 Year
  Sex: Male

DRUGS (3)
  1. ONBREZ [Suspect]
     Indication: CHRONIC OBSTRUCTIVE PULMONARY DISEASE
     Dosage: 150 ug, QD
     Dates: start: 20120815, end: 20120904
  2. SPIRIVA [Concomitant]
     Dates: start: 20120815
  3. BERODUAL [Concomitant]

REACTIONS (5)
  - Eye pain [Unknown]
  - Muscle spasms [Unknown]
  - Myalgia [Recovered/Resolved]
  - Respiratory disorder [Recovered/Resolved]
  - Oropharyngeal pain [Recovered/Resolved]
